FAERS Safety Report 15906313 (Version 1)
Quarter: 2019Q1

REPORT INFORMATION
  Report Type: Report from Study
  Country: US (occurrence: US)
  Receive Date: 20190204
  Receipt Date: 20190204
  Transmission Date: 20190417
  Serious: Yes (Hospitalization, Other)
  Sender: FDA-Public Use
  Company Number: US-SAKK-2019SA023607AA

PATIENT
  Age: 70 Year
  Sex: Male

DRUGS (3)
  1. INSULIN GLARGINE [Suspect]
     Active Substance: INSULIN GLARGINE
     Dosage: 80 SOMETHING UNITS, QD
     Route: 058
  2. INSULIN GLARGINE [Suspect]
     Active Substance: INSULIN GLARGINE
     Indication: DIABETES MELLITUS
     Dosage: 90 SOMETHING UNITS, QD
     Route: 058
  3. INSULIN GLARGINE [Suspect]
     Active Substance: INSULIN GLARGINE
     Dosage: 66 SOMETHING UNITS, QD
     Route: 058

REACTIONS (6)
  - Skin cancer [Recovered/Resolved]
  - Tonsillectomy [Unknown]
  - Lymphoma [Unknown]
  - Neck dissection [Unknown]
  - Malignant melanoma [Recovered/Resolved]
  - Metastases to tonsils [Recovered/Resolved]
